FAERS Safety Report 7743800-2 (Version None)
Quarter: 2011Q3

REPORT INFORMATION
  Report Type: 
  Country: None (occurrence: None)
  Receive Date: 20110912
  Receipt Date: 20110902
  Transmission Date: 20111222
  Serious: Yes (Hospitalization)
  Sender: FDA-Public Use
  Company Number: US-GLAXOSMITHKLINE-A0883280A

PATIENT
  Age: 75 Year
  Sex: Male
  Weight: 77.3 kg

DRUGS (4)
  1. GLYBURIDE [Concomitant]
  2. AVANDIA [Suspect]
     Indication: DIABETES MELLITUS
     Dosage: 8MG PER DAY
     Route: 048
     Dates: start: 19990101, end: 20060725
  3. CATAPRES [Concomitant]
  4. ENALAPRIL MALEATE [Concomitant]

REACTIONS (3)
  - MYOCARDIAL INFARCTION [None]
  - CARDIAC FAILURE CONGESTIVE [None]
  - ACUTE CORONARY SYNDROME [None]
